FAERS Safety Report 12753185 (Version 1)
Quarter: 2016Q3

REPORT INFORMATION
  Report Type: Spontaneous
  Country: US (occurrence: US)
  Receive Date: 20160915
  Receipt Date: 20160915
  Transmission Date: 20161109
  Serious: No
  Sender: FDA-Public Use
  Company Number: US-ASTELLAS-2015US039972

PATIENT
  Sex: Male

DRUGS (1)
  1. XTANDI [Suspect]
     Active Substance: ENZALUTAMIDE
     Indication: PROSTATE CANCER
     Route: 048
     Dates: start: 20151003

REACTIONS (5)
  - Weight decreased [Unknown]
  - Pruritus generalised [Unknown]
  - Pruritus [Unknown]
  - Blood urine present [Unknown]
  - Pollakiuria [Unknown]
